FAERS Safety Report 6979891-6 (Version None)
Quarter: 2010Q3

REPORT INFORMATION
  Report Type: 
  Country: None (occurrence: None)
  Receive Date: 20100909
  Receipt Date: 20100902
  Transmission Date: 20110219
  Serious: Yes (Death, Other)
  Sender: FDA-Public Use
  Company Number: 2010JP005250

PATIENT
  Age: 15 Year
  Sex: Male

DRUGS (5)
  1. TACROLIMUS [Suspect]
     Indication: LIVER TRANSPLANT
  2. FLUCONAZOLE (FLUCONAZOLE) FORMULATION UNKNOWN [Concomitant]
  3. AMPHOTERICIN (AMPHOTERICIN B) FORMULATION UNKNOWN [Concomitant]
  4. ITRACONAZOLE (ITRACONAZOLE) FORMULATION UNKNOWN [Concomitant]
  5. AMBISOME (AMPHOTERICIN B, CHOLESTEROL) FORMULATION UNKNOWN [Concomitant]

REACTIONS (4)
  - ASPERGILLOSIS [None]
  - PULMONARY OEDEMA [None]
  - RENAL FAILURE [None]
  - RESPIRATORY FAILURE [None]
